FAERS Safety Report 18893288 (Version 6)
Quarter: 2021Q3

REPORT INFORMATION
  Report Type: Other
  Country: BE (occurrence: BE)
  Receive Date: 20210215
  Receipt Date: 20210907
  Transmission Date: 20211014
  Serious: No
  Sender: FDA-Public Use
  Company Number: BE-ROCHE-2769283

PATIENT
  Age: 58 Year
  Sex: Male
  Weight: 86 kg

DRUGS (19)
  1. ZOLPIDEM [Concomitant]
     Active Substance: ZOLPIDEM TARTRATE
     Indication: INSOMNIA
     Route: 048
     Dates: start: 201708
  2. METHYLPREDNISOLONE. [Concomitant]
     Active Substance: METHYLPREDNISOLONE
     Indication: MULTIPLE SCLEROSIS RELAPSE
     Route: 042
     Dates: start: 20210129, end: 20210202
  3. CETIRIZINE [Concomitant]
     Active Substance: CETIRIZINE HYDROCHLORIDE
     Indication: PREMEDICATION
     Dosage: DATE OF TREATMENT: 10/JUN/2020 AND  12/DEC/2019, 09/DEC/2020
     Route: 048
     Dates: start: 20190617, end: 20190617
  4. OCRELIZUMAB. [Suspect]
     Active Substance: OCRELIZUMAB
     Dosage: DOSAGE FORMULATION: 300 MG/?250 ML
     Route: 042
     Dates: start: 20190617, end: 20190617
  5. OCRELIZUMAB. [Suspect]
     Active Substance: OCRELIZUMAB
     Dosage: 600MG/500 ML
     Route: 042
     Dates: start: 20201209, end: 20201209
  6. DAFALGAN [Concomitant]
     Active Substance: ACETAMINOPHEN
     Indication: PREMEDICATION
     Route: 048
     Dates: start: 20190603, end: 20190603
  7. DAFALGAN [Concomitant]
     Active Substance: ACETAMINOPHEN
     Route: 048
     Dates: start: 20191212, end: 20191212
  8. COVID?19 VACCINE [Concomitant]
     Route: 030
     Dates: start: 20210421, end: 20210421
  9. OCRELIZUMAB. [Suspect]
     Active Substance: OCRELIZUMAB
     Dosage: DOSAGE FORMULATION: 600 MG/500 ML?DATE OF TREATMENT: 10/JUN/2020
     Route: 042
     Dates: start: 20191212, end: 20191212
  10. DAFALGAN [Concomitant]
     Active Substance: ACETAMINOPHEN
     Dosage: DATE OF TREATMENT: 09/DEC/2020
     Route: 048
     Dates: start: 20200610, end: 20200610
  11. OCRELIZUMAB. [Suspect]
     Active Substance: OCRELIZUMAB
     Indication: RELAPSING-REMITTING MULTIPLE SCLEROSIS
     Dosage: DOSAGE: 300 MG/250 ML
     Route: 042
     Dates: start: 20190603, end: 20190603
  12. ZYLORIC [Concomitant]
     Active Substance: ALLOPURINOL
     Indication: GOUT
     Route: 048
     Dates: start: 201304
  13. DEXAMETASONE [Concomitant]
     Active Substance: DEXAMETHASONE
     Indication: PREMEDICATION
     Route: 042
     Dates: start: 20190617, end: 20190617
  14. MEDROL [Concomitant]
     Active Substance: METHYLPREDNISOLONE
     Indication: PREMEDICATION
     Route: 048
     Dates: start: 20201209, end: 20201209
  15. OCRELIZUMAB. [Suspect]
     Active Substance: OCRELIZUMAB
     Route: 042
     Dates: start: 20200610, end: 20200610
  16. DAFALGAN [Concomitant]
     Active Substance: ACETAMINOPHEN
     Route: 048
     Dates: start: 20190617, end: 20190617
  17. INFLUENZA VACCINE [Concomitant]
     Active Substance: INFLUENZA VIRUS VACCINE
     Indication: PROPHYLAXIS
     Route: 030
     Dates: start: 202012, end: 202012
  18. SOLU?MEDROL [Concomitant]
     Active Substance: METHYLPREDNISOLONE SODIUM SUCCINATE
     Indication: PREMEDICATION
     Dosage: DATE OF TREATMENT: 12/DEC/2019 AND 10/JUN/2020
     Route: 042
     Dates: start: 20190603, end: 20190603
  19. DAFALGAN [Concomitant]
     Active Substance: ACETAMINOPHEN
     Indication: GOUT
     Route: 048
     Dates: start: 201304

REACTIONS (1)
  - COVID-19 [Recovered/Resolved]

NARRATIVE: CASE EVENT DATE: 20201028
